FAERS Safety Report 6917569-5 (Version None)
Quarter: 2010Q3

REPORT INFORMATION
  Report Type: 
  Country: None (occurrence: None)
  Receive Date: 20100806
  Receipt Date: 20100729
  Transmission Date: 20110219
  Serious: Yes (Hospitalization, Disabling, Other)
  Sender: FDA-Public Use
  Company Number: VISP-NO-1007S-0381

PATIENT
  Age: 59 Year
  Sex: Female

DRUGS (6)
  1. VISIPAQUE [Suspect]
     Indication: PRODUCT USED FOR UNKNOWN INDICATION
     Dosage: SINGLE DOSE, I.A.
     Route: 014
     Dates: start: 20090904, end: 20090904
  2. FELODIPINE [Concomitant]
  3. ENALAPRIL (CORODIL) [Concomitant]
  4. SALURES-K (CENTYL MED KALIUMKLORID) [Concomitant]
  5. SEROQUEL [Concomitant]
  6. CITALOPRAM (AKARIN) [Concomitant]

REACTIONS (10)
  - COORDINATION ABNORMAL [None]
  - GAIT DISTURBANCE [None]
  - GUILLAIN-BARRE SYNDROME [None]
  - HYPERSENSITIVITY [None]
  - MECHANICAL ILEUS [None]
  - MENTAL DISORDER [None]
  - NEURALGIA [None]
  - POLYNEUROPATHY [None]
  - PRURITUS [None]
  - RASH [None]
